FAERS Safety Report 7318674-4 (Version None)
Quarter: 2011Q1

REPORT INFORMATION
  Report Type: 
  Country: None (occurrence: None)
  Receive Date: 20110228
  Receipt Date: 20110216
  Transmission Date: 20110831
  Serious: Yes (Hospitalization, Other)
  Sender: FDA-Public Use
  Company Number: US-JNJFOC-20110207823

PATIENT
  Sex: Male
  Weight: 71.58 kg

DRUGS (35)
  1. RIVAROXABAN [Suspect]
     Indication: ACUTE CORONARY SYNDROME
     Route: 048
  2. OMEPRAZOLE [Concomitant]
  3. LIPITOR [Concomitant]
  4. SODIUM CHLORIDE [Concomitant]
  5. PREDNISONE [Concomitant]
  6. RIVAROXABAN [Suspect]
     Route: 048
  7. COLCHICINE [Concomitant]
  8. AVAPRO [Concomitant]
  9. ADVAIR DISKUS 100/50 [Concomitant]
  10. TYLENOL [Concomitant]
  11. PLACEBO [Suspect]
     Route: 048
  12. TRAZODONE [Concomitant]
  13. CLOPIDOGREL [Suspect]
     Indication: ACUTE CORONARY SYNDROME
     Route: 048
  14. NORVASC [Concomitant]
  15. FUROSEMIDE [Concomitant]
  16. K-DUR [Concomitant]
  17. MESALAMINE [Concomitant]
  18. ASPIRIN [Suspect]
     Indication: ACUTE CORONARY SYNDROME
     Route: 048
  19. PLACEBO [Suspect]
     Indication: ACUTE CORONARY SYNDROME
     Route: 048
  20. PLACEBO [Suspect]
     Route: 048
  21. DEMEROL [Concomitant]
  22. RIVAROXABAN [Suspect]
     Route: 048
  23. ALLOPURINOL [Concomitant]
  24. RAMIPRIL [Concomitant]
  25. NEURONTIN [Concomitant]
  26. SEPTRA [Concomitant]
  27. AMARYL [Concomitant]
  28. COREG [Concomitant]
  29. ATROVENT [Concomitant]
  30. LIDODERM [Concomitant]
  31. CIPRO [Concomitant]
  32. FLONASE [Concomitant]
  33. ZOLPIDEM [Concomitant]
  34. CENTRUM SILVER [Concomitant]
  35. VERSED [Concomitant]

REACTIONS (2)
  - INTESTINAL OBSTRUCTION [None]
  - UPPER GASTROINTESTINAL HAEMORRHAGE [None]
